FAERS Safety Report 5614912-4 (Version None)
Quarter: 2008Q1

REPORT INFORMATION
  Report Type: 
  Country: None (occurrence: None)
  Receive Date: 20080204
  Receipt Date: 20080204
  Transmission Date: 20080703
  Serious: Yes (Hospitalization)
  Sender: FDA-Public Use
  Company Number: None

PATIENT
  Age: 48 Year
  Sex: Female
  Weight: 77.1115 kg

DRUGS (4)
  1. NORMAL SALINE IV FLUSH 10 ML BRAUN [Suspect]
     Indication: BREAST LUMP REMOVAL
     Dosage: SEE IMAGE
     Route: 042
     Dates: start: 20080101, end: 20080201
  2. NORMAL SALINE IV FLUSH 10 ML BRAUN [Suspect]
     Indication: INTRAVENOUS CATHETER MANAGEMENT
     Dosage: SEE IMAGE
     Route: 042
     Dates: start: 20080101, end: 20080201
  3. NORMAL SALINE IV FLUSH 10 ML BRAUN [Suspect]
     Indication: POSTOPERATIVE WOUND INFECTION
     Dosage: SEE IMAGE
     Route: 042
     Dates: start: 20080101, end: 20080201
  4. . [Concomitant]

REACTIONS (9)
  - BURNING SENSATION [None]
  - CHILLS [None]
  - HEADACHE [None]
  - INFLUENZA LIKE ILLNESS [None]
  - MYALGIA [None]
  - NAUSEA [None]
  - PAIN IN EXTREMITY [None]
  - PHARMACEUTICAL PRODUCT COMPLAINT [None]
  - THERAPEUTIC PRODUCT CONTAMINATION [None]
